FAERS Safety Report 17039362 (Version 1)
Quarter: 2019Q4

REPORT INFORMATION
  Report Type: Spontaneous
  Country: US (occurrence: US)
  Receive Date: 20191115
  Receipt Date: 20191115
  Transmission Date: 20200122
  Serious: Yes (Other)
  Sender: FDA-Public Use
  Company Number: US-SA-2019SA313901

PATIENT
  Age: 56 Year
  Sex: Female

DRUGS (6)
  1. CARVEDILOL. [Suspect]
     Active Substance: CARVEDILOL
     Indication: PRODUCT USED FOR UNKNOWN INDICATION
     Dosage: UNK UNK, UNK
     Route: 065
  2. ZANAFLEX [Suspect]
     Active Substance: TIZANIDINE HYDROCHLORIDE
     Indication: PRODUCT USED FOR UNKNOWN INDICATION
     Dosage: UNK UNK, UNK
     Route: 065
  3. SENNA [SENNA ALEXANDRINA] [Concomitant]
     Active Substance: SENNA LEAF
     Dosage: UNK UNK, UNK
  4. CABOZANTINIB [Suspect]
     Active Substance: CABOZANTINIB
     Indication: RENAL CANCER
     Dosage: 60 MG, QD, (AM WITHOUT FOOD)
     Route: 065
     Dates: start: 20190621, end: 20190731
  5. LOVENOX [Suspect]
     Active Substance: ENOXAPARIN SODIUM
     Indication: PRODUCT USED FOR UNKNOWN INDICATION
     Dosage: UNK UNK, UNK
     Route: 065
  6. CABOZANTINIB [Suspect]
     Active Substance: CABOZANTINIB
     Dosage: 40 MG, QD, (10 PM WITHOUT FOOD)
     Route: 065
     Dates: start: 20190814

REACTIONS (13)
  - Anaemia [Recovered/Resolved]
  - Blood count abnormal [Unknown]
  - Vomiting [Recovered/Resolved]
  - Transfusion [Unknown]
  - Restless legs syndrome [Not Recovered/Not Resolved]
  - Nausea [Recovered/Resolved]
  - Haematuria [Recovered/Resolved]
  - Hypotension [Unknown]
  - Asthenia [Not Recovered/Not Resolved]
  - Blood urine present [Unknown]
  - Drug intolerance [Unknown]
  - Ageusia [Recovered/Resolved]
  - Decreased appetite [Recovered/Resolved]
